FAERS Safety Report 14295378 (Version 1)
Quarter: 2017Q4

REPORT INFORMATION
  Report Type: Spontaneous
  Country: US (occurrence: US)
  Receive Date: 20171218
  Receipt Date: 20171218
  Transmission Date: 20180321
  Serious: No
  Sender: FDA-Public Use
  Company Number: US-PFIZER INC-2017534532

PATIENT
  Sex: Male

DRUGS (1)
  1. LYRICA [Suspect]
     Active Substance: PREGABALIN
     Indication: INSOMNIA
     Dosage: UNK [3 PILLS AT NIGHT TO BE ABLE TO SLEEP AND THEN 1 MORE IN THE MORNING]

REACTIONS (3)
  - Intentional product misuse [Unknown]
  - Burning sensation [Unknown]
  - Product use in unapproved indication [Unknown]
